FAERS Safety Report 6178096-9 (Version None)
Quarter: 2009Q2

REPORT INFORMATION
  Report Type: 
  Country: None (occurrence: None)
  Receive Date: 20090501
  Receipt Date: 20090501
  Transmission Date: 20091009
  Serious: No
  Sender: FDA-Public Use
  Company Number: None

PATIENT
  Age: 42 Year
  Sex: Male
  Weight: 111 kg

DRUGS (1)
  1. LEVETIRACETAM [Suspect]
     Indication: CONVULSION
     Dosage: 1500 MG BID PO
     Route: 048
     Dates: start: 20090424, end: 20090428

REACTIONS (3)
  - NAUSEA [None]
  - TABLET ISSUE [None]
  - VOMITING [None]
